FAERS Safety Report 7549585-7 (Version None)
Quarter: 2011Q2

REPORT INFORMATION
  Report Type: 
  Country: None (occurrence: None)
  Receive Date: 20110615
  Receipt Date: 20110608
  Transmission Date: 20111010
  Serious: Yes (Life-Threatening, Disabling)
  Sender: FDA-Public Use
  Company Number: A0930790A

PATIENT
  Age: 72 Year
  Sex: Female

DRUGS (9)
  1. SINGULAIR [Concomitant]
  2. ALBUTEROL [Concomitant]
  3. METFORMIN HCL [Concomitant]
  4. ALLEGRA [Concomitant]
  5. ACTOS [Concomitant]
  6. PREDNISONE [Concomitant]
  7. ADVAIR DISKUS 100/50 [Suspect]
     Route: 055
     Dates: start: 20050219
  8. VENTOLIN HFA [Concomitant]
  9. GABAPENTIN [Concomitant]

REACTIONS (2)
  - PRODUCT QUALITY ISSUE [None]
  - THROAT TIGHTNESS [None]
